FAERS Safety Report 19232073 (Version 1)
Quarter: 2021Q2

REPORT INFORMATION
  Report Type: Spontaneous
  Country: GB (occurrence: GB)
  Receive Date: 20210507
  Receipt Date: 20210507
  Transmission Date: 20210717
  Serious: Yes (Other)
  Sender: FDA-Public Use
  Company Number: GB-TEVA-2021-GB-1908226

PATIENT
  Sex: Male

DRUGS (11)
  1. CO?DYDRAMOL [Concomitant]
     Active Substance: ACETAMINOPHEN\DIHYDROCODEINE
     Dosage: 10MG/500MG, ONE TO BE TAKEN FOUR TIMES A DAY WHEN REQUIRED 112 TABLET ? TAKES 2 TABS THREE TIMES A D
  2. OLANZAPINE. [Concomitant]
     Active Substance: OLANZAPINE
     Dosage: 1 DOSAGE FORMS DAILY; AT NIGHT,28 TABLET
  3. ASPIRIN. [Concomitant]
     Active Substance: ASPIRIN
     Dosage: 1 DOSAGE FORMS DAILY;
  4. OMEPRAZOLE. [Concomitant]
     Active Substance: OMEPRAZOLE
     Dosage: 2 DOSAGE FORMS DAILY; 56 CAPSULE
  5. ATORVASTATIN [Suspect]
     Active Substance: ATORVASTATIN
     Dosage: 1 DOSAGE FORMS DAILY; EACH NIGHT,
     Route: 065
  6. CETIRIZINE [Concomitant]
     Active Substance: CETIRIZINE HYDROCHLORIDE
     Dosage: 1 DOSAGE FORMS DAILY; IN THE AFTRENOON
  7. FUROSEMIDE. [Concomitant]
     Active Substance: FUROSEMIDE
     Dosage: 1 DOSAGE FORMS DAILY; EACH MORNING
  8. SALBUTAMOL [Concomitant]
     Active Substance: ALBUTEROL
     Dosage: 100MICROGRAMS/DOSE INHALER CFC FREE 2 PUFFS WHEN REQUIRED
  9. SENNA [Concomitant]
     Active Substance: SENNA LEAF\SENNOSIDES\SENNOSIDES A AND B
     Dosage: 2 DOSAGE FORMS DAILY; AT NIGHT ,56 TABLET
  10. QUININE [Concomitant]
     Active Substance: QUININE
     Dosage: 1 DOSAGE FORMS DAILY; BE TAKEN AT 2PM ? ONCE A DAY 28 TABLET
  11. RILUZOLE. [Concomitant]
     Active Substance: RILUZOLE
     Dosage: 2 DOSAGE FORMS DAILY; ONE TO BE TAKEN IN THE MORNING AND ONE AT NIGHT 56 TABLET

REACTIONS (1)
  - Alopecia [Unknown]
